FAERS Safety Report 6152248-6 (Version None)
Quarter: 2009Q2

REPORT INFORMATION
  Report Type: 
  Country: None (occurrence: None)
  Receive Date: 20090410
  Receipt Date: 20090406
  Transmission Date: 20091009
  Serious: Yes (Other)
  Sender: FDA-Public Use
  Company Number: NL-ABBOTT-09P-114-0558385-00

PATIENT
  Sex: Female
  Weight: 57 kg

DRUGS (4)
  1. HUMIRA [Suspect]
     Indication: CROHN'S DISEASE
     Route: 058
     Dates: start: 20070801
  2. HUMIRA [Suspect]
     Indication: UVEITIS
  3. HUMIRA [Suspect]
     Indication: RHEUMATOID ARTHRITIS
  4. URSAFALK [Concomitant]
     Indication: HEPATIC CIRRHOSIS
     Dosage: NOT REPORTED
     Dates: start: 20060801

REACTIONS (1)
  - BIOPSY SITE UNSPECIFIED ABNORMAL [None]
